FAERS Safety Report 24837221 (Version 1)
Quarter: 2025Q1

REPORT INFORMATION
  Report Type: Spontaneous
  Country: US (occurrence: None)
  Receive Date: 20250113
  Receipt Date: 20250113
  Transmission Date: 20250409
  Serious: Yes (Other)
  Sender: FDA-CTU
  Company Number: None

PATIENT
  Sex: Female

DRUGS (4)
  1. REPATHA [Suspect]
     Active Substance: EVOLOCUMAB
     Indication: Hyperlipidaemia
     Dates: start: 20241101
  2. ASPIRIN TAB 325MG EC [Concomitant]
  3. LOSARTAN POT TAB 100MG [Concomitant]
  4. REPATHA PUSHTRONEX SYSTEM [Concomitant]

REACTIONS (4)
  - Cerebrovascular accident [None]
  - Intracranial aneurysm [None]
  - Memory impairment [None]
  - Product dose omission in error [None]
